FAERS Safety Report 11502422 (Version 1)
Quarter: 2015Q3

REPORT INFORMATION
  Report Type: Spontaneous
  Country: US (occurrence: US)
  Receive Date: 20150914
  Receipt Date: 20150914
  Transmission Date: 20151125
  Serious: Yes (Other)
  Sender: FDA-Public Use
  Company Number: US-ASTELLAS-2015US020981

PATIENT
  Age: 74 Year
  Sex: Male

DRUGS (1)
  1. XTANDI [Suspect]
     Active Substance: ENZALUTAMIDE
     Indication: PROSTATE CANCER
     Dosage: UNK, UNKNOWN FREQ.
     Route: 065

REACTIONS (8)
  - Fatigue [Unknown]
  - Insomnia [Unknown]
  - Paraesthesia [Unknown]
  - Malignant neoplasm progression [Unknown]
  - Dyspnoea [Unknown]
  - Underdose [Unknown]
  - Cough [Unknown]
  - Lymphoedema [Unknown]

NARRATIVE: CASE EVENT DATE: 20150530
